FAERS Safety Report 20920036 (Version 3)
Quarter: 2022Q3

REPORT INFORMATION
  Report Type: Spontaneous
  Country: US (occurrence: US)
  Receive Date: 20220606
  Receipt Date: 20220705
  Transmission Date: 20221027
  Serious: Yes (Other)
  Sender: FDA-Public Use
  Company Number: US-BAYER-2022A076018

PATIENT
  Age: 34 Year
  Sex: Male

DRUGS (5)
  1. KOGENATE FS [Suspect]
     Active Substance: ANTIHEMOPHILIC FACTOR, HUMAN RECOMBINANT
     Dosage: 6750 IU
  2. KOGENATE FS [Suspect]
     Active Substance: ANTIHEMOPHILIC FACTOR, HUMAN RECOMBINANT
     Dosage: 2 DF, DOUBLE DOSE, FOR THE SPONTANEOUS LEFT ELBOW BLEED TREATMENT
     Dates: start: 20220510, end: 20220510
  3. KOGENATE FS [Suspect]
     Active Substance: ANTIHEMOPHILIC FACTOR, HUMAN RECOMBINANT
     Dosage: 1 DF, FOR THE SPONTANEOUS LEFT ELBOW BLEED
     Dates: start: 20220511, end: 20220511
  4. KOGENATE FS [Suspect]
     Active Substance: ANTIHEMOPHILIC FACTOR, HUMAN RECOMBINANT
     Dosage: 2 DF, FOR THE RIGHT HAND BLEED TREAMENT
     Dates: start: 20220521, end: 20220521
  5. KOGENATE FS [Suspect]
     Active Substance: ANTIHEMOPHILIC FACTOR, HUMAN RECOMBINANT
     Dosage: 3 DOUBLE DOSES AND 1 SINGLE DOSE FOR THE SEPARATED LEFT SHOULDER
     Dates: start: 20220617, end: 20220617

REACTIONS (3)
  - Haemarthrosis [None]
  - Haemorrhage [None]
  - Joint dislocation [None]

NARRATIVE: CASE EVENT DATE: 20220510
